FAERS Safety Report 5669468-7 (Version None)
Quarter: 2008Q1

REPORT INFORMATION
  Report Type: 
  Country: None (occurrence: None)
  Receive Date: 20080317
  Receipt Date: 20080314
  Transmission Date: 20080703
  Serious: Yes (Hospitalization)
  Sender: FDA-Public Use
  Company Number: D0056499A

PATIENT
  Age: 21 Year
  Sex: Female

DRUGS (2)
  1. LAMICTAL [Suspect]
     Dosage: 25MG PER DAY
     Route: 048
     Dates: start: 20071207, end: 20071218
  2. CIPRAMIL [Suspect]
     Dosage: 20MG PER DAY
     Route: 048
     Dates: start: 20071108, end: 20071220

REACTIONS (7)
  - DERMATITIS ALLERGIC [None]
  - HYPERSENSITIVITY [None]
  - INFECTION [None]
  - NEUTROPENIA [None]
  - PYREXIA [None]
  - RASH MACULAR [None]
  - VIRAL INFECTION [None]
